FAERS Safety Report 8912688 (Version 3)
Quarter: 2012Q4

REPORT INFORMATION
  Report Type: Report from Study
  Country: DE (occurrence: DE)
  Receive Date: 20121116
  Receipt Date: 20121227
  Transmission Date: 20130627
  Serious: Yes (Hospitalization)
  Sender: FDA-Public Use
  Company Number: DE-AMGEN-DEUCT2012073015

PATIENT
  Sex: Female

DRUGS (6)
  1. PEGFILGRASTIM [Suspect]
     Indication: B-CELL LYMPHOMA
     Dosage: 6 mg, qd
     Route: 058
     Dates: start: 20121019, end: 20121019
  2. MABTHERA [Concomitant]
     Indication: B-CELL LYMPHOMA
     Dosage: 650 mg, UNK
     Route: 042
     Dates: start: 20121016, end: 20121029
  3. CYCLOPHOSPHAMIDE [Concomitant]
     Indication: B-CELL LYMPHOMA
     Dosage: 1319 mg, UNK
     Route: 042
     Dates: start: 20121016, end: 20121030
  4. DOXORUBICIN [Concomitant]
     Indication: B-CELL LYMPHOMA
     Dosage: 88 mg, qd
     Route: 042
     Dates: start: 20121016, end: 20121030
  5. VINCRISTINE [Concomitant]
     Indication: B-CELL LYMPHOMA
     Dosage: 2 mg, UNK
     Route: 042
     Dates: start: 20121016, end: 20121030
  6. PREDNISOLONE [Concomitant]
     Indication: B-CELL LYMPHOMA
     Dosage: 100 mg, qd
     Route: 048
     Dates: start: 20121016, end: 20121103

REACTIONS (1)
  - Pneumonia [Recovered/Resolved]
